FAERS Safety Report 7689914-7 (Version None)
Quarter: 2011Q3

REPORT INFORMATION
  Report Type: 
  Country: None (occurrence: None)
  Receive Date: 20110818
  Receipt Date: 20110808
  Transmission Date: 20111222
  Serious: No
  Sender: FDA-Public Use
  Company Number: US-BIOGENIDEC-2011BI026955

PATIENT
  Sex: Female

DRUGS (1)
  1. TYSABRI [Suspect]
     Indication: MULTIPLE SCLEROSIS
     Route: 042
     Dates: start: 20110714

REACTIONS (8)
  - VISION BLURRED [None]
  - MOBILITY DECREASED [None]
  - BALANCE DISORDER [None]
  - PAIN IN EXTREMITY [None]
  - FALL [None]
  - ADVERSE EVENT [None]
  - ARTHRALGIA [None]
  - EAR PAIN [None]
